FAERS Safety Report 12349348 (Version 2)
Quarter: 2016Q2

REPORT INFORMATION
  Report Type: Report from Study
  Country: BR (occurrence: BR)
  Receive Date: 20160509
  Receipt Date: 20160525
  Transmission Date: 20160815
  Serious: Yes (Other)
  Sender: FDA-Public Use
  Company Number: PHHY2016BR063214

PATIENT
  Sex: Female
  Weight: 45 kg

DRUGS (3)
  1. EXELON PATCH [Suspect]
     Active Substance: RIVASTIGMINE
     Indication: DEMENTIA ALZHEIMER^S TYPE
     Dosage: 18 MG / EXELON 10 CM2 PATCH, 9.5 MG, QD
     Route: 062
  2. CARVEDILOL. [Concomitant]
     Active Substance: CARVEDILOL
     Indication: HYPERTENSION
     Dosage: 3.125 MG, BID (2 TABLETS/DAY)
     Route: 048
  3. MEMANTINE HYDROCHLORIDE. [Concomitant]
     Active Substance: MEMANTINE HYDROCHLORIDE
     Indication: DEMENTIA ALZHEIMER^S TYPE
     Dosage: 10 MG, BID (2 TABLETS/DAY)
     Route: 048

REACTIONS (4)
  - Gait disturbance [Unknown]
  - Fall [Recovered/Resolved]
  - Femur fracture [Recovering/Resolving]
  - Application site pruritus [Not Recovered/Not Resolved]
